FAERS Safety Report 7207713-7 (Version None)
Quarter: 2011Q1

REPORT INFORMATION
  Report Type: 
  Country: None (occurrence: None)
  Receive Date: 20110103
  Receipt Date: 20101223
  Transmission Date: 20110831
  Serious: Yes (Other)
  Sender: FDA-Public Use
  Company Number: CA-JNJFOC-20101005424

PATIENT
  Sex: Female
  Weight: 54.43 kg

DRUGS (7)
  1. EXTRA STRENGTH TYLENOL [Suspect]
     Indication: PAIN
     Route: 048
  2. FUROSEMIDE [Concomitant]
     Route: 065
  3. SPIRONOLACTONE [Concomitant]
     Route: 065
  4. EXTRA STRENGTH TYLENOL [Suspect]
     Route: 048
  5. EXTRA STRENGTH TYLENOL [Suspect]
     Indication: NECK PAIN
     Route: 048
  6. EXTRA STRENGTH TYLENOL [Suspect]
     Route: 048
  7. SALBUTAMOL SULFATE [Concomitant]
     Indication: WHEEZING
     Route: 055

REACTIONS (2)
  - WHEEZING [None]
  - COUGH [None]
